FAERS Safety Report 4338290-6 (Version None)
Quarter: 2004Q2

REPORT INFORMATION
  Report Type: 
  Country: None (occurrence: None)
  Receive Date: 20040409
  Receipt Date: 20040330
  Transmission Date: 20050107
  Serious: Yes (Hospitalization)
  Sender: FDA-Public Use
  Company Number: HQWYE294531MAR04

PATIENT
  Age: 20 Year
  Sex: Female

DRUGS (2)
  1. EFFEXOR [Suspect]
     Indication: DEPRESSION
     Dosage: 75 MG 1X PER 21 DAY ORAL
     Route: 048
     Dates: start: 20040120, end: 20040201
  2. ZOLOFT [Concomitant]

REACTIONS (3)
  - CHOREOATHETOSIS [None]
  - DYSARTHRIA [None]
  - TRISMUS [None]
